FAERS Safety Report 16083214 (Version 1)
Quarter: 2019Q1

REPORT INFORMATION
  Report Type: Report from Study
  Country: US (occurrence: US)
  Receive Date: 20190318
  Receipt Date: 20190318
  Transmission Date: 20190418
  Serious: Yes (Other)
  Sender: FDA-Public Use
  Company Number: US-ROCHE-2278386

PATIENT

DRUGS (2)
  1. BEVACIZUMAB. [Suspect]
     Active Substance: BEVACIZUMAB
     Indication: METASTATIC RENAL CELL CARCINOMA
     Dosage: 10 OR 15 MG/KG DOSE
     Route: 065
  2. PEMBROLIZUMAB. [Suspect]
     Active Substance: PEMBROLIZUMAB
     Indication: METASTATIC RENAL CELL CARCINOMA
     Route: 065

REACTIONS (14)
  - Hyponatraemia [Unknown]
  - Adrenal insufficiency [Unknown]
  - Skin toxicity [Unknown]
  - Nausea [Unknown]
  - Pneumonitis [Unknown]
  - Arthralgia [Unknown]
  - Proteinuria [Unknown]
  - Vomiting [Unknown]
  - Hyperglycaemia [Unknown]
  - Hypertension [Unknown]
  - Diarrhoea [Unknown]
  - Dehydration [Unknown]
  - Asthenia [Unknown]
  - Cardiac failure [Unknown]
